FAERS Safety Report 8183880-6 (Version None)
Quarter: 2012Q1

REPORT INFORMATION
  Report Type: 
  Country: None (occurrence: None)
  Receive Date: 20120305
  Receipt Date: 20120228
  Transmission Date: 20120608
  Serious: Yes (Hospitalization)
  Sender: FDA-Public Use
  Company Number: FR-TEVA-325097USA

PATIENT
  Sex: Female

DRUGS (6)
  1. RITUXIMAB [Suspect]
     Dosage: 619 MILLIGRAM;
     Route: 042
     Dates: start: 20120207
  2. NEULASTA [Concomitant]
     Dates: start: 20120201
  3. BACTRIM [Concomitant]
     Dates: start: 20120207
  4. EPOETIN BETA [Concomitant]
     Dates: start: 20120201
  5. VALACICLOVIR [Concomitant]
     Dates: start: 20120207
  6. TREANDA [Suspect]
     Dosage: 116 MILLIGRAM;
     Route: 042
     Dates: start: 20120207

REACTIONS (1)
  - FEBRILE BONE MARROW APLASIA [None]
